FAERS Safety Report 9928895 (Version 1)
Quarter: 2014Q1

REPORT INFORMATION
  Report Type: Spontaneous
  Country: BE (occurrence: BE)
  Receive Date: 20140227
  Receipt Date: 20140227
  Transmission Date: 20141002
  Serious: Yes (Hospitalization, Other)
  Sender: FDA-Public Use
  Company Number: BE-PFIZER INC-2014052449

PATIENT
  Age: 35 Year
  Sex: Female

DRUGS (3)
  1. PANTOMED [Suspect]
     Indication: ABDOMINAL DISCOMFORT
     Dosage: 40 MG, 1X/DAY
     Route: 048
     Dates: start: 2013, end: 201401
  2. PANTOMED [Suspect]
     Indication: DYSPEPSIA
  3. DAFALGAN [Concomitant]
     Dosage: UNK

REACTIONS (1)
  - Pancreatitis [Recovered/Resolved]
